FAERS Safety Report 21315268 (Version 2)
Quarter: 2024Q3

REPORT INFORMATION
  Report Type: Spontaneous
  Country: US (occurrence: None)
  Receive Date: 20220909
  Receipt Date: 20240906
  Transmission Date: 20241016
  Serious: No
  Sender: DOMPE FARMACEUTICI
  Company Number: US-ARIS GLOBAL-202111-2066

PATIENT
  Sex: Female

DRUGS (23)
  1. OXERVATE [Suspect]
     Active Substance: CENEGERMIN-BKBJ
     Indication: Neurotrophic keratopathy
     Route: 047
     Dates: start: 20211108, end: 20220117
  2. OXERVATE [Suspect]
     Active Substance: CENEGERMIN-BKBJ
     Route: 047
     Dates: start: 20230606
  3. OXERVATE [Suspect]
     Active Substance: CENEGERMIN-BKBJ
  4. OXERVATE [Suspect]
     Active Substance: CENEGERMIN-BKBJ
  5. OXERVATE [Suspect]
     Active Substance: CENEGERMIN-BKBJ
  6. OXERVATE [Suspect]
     Active Substance: CENEGERMIN-BKBJ
  7. OXERVATE [Suspect]
     Active Substance: CENEGERMIN-BKBJ
  8. TRAZODONE HCL [Concomitant]
     Active Substance: TRAZODONE HYDROCHLORIDE
  9. POTASSIUM [Concomitant]
     Active Substance: POTASSIUM
     Dosage: 595 (99) MG
  10. PANTOPRAZOLE SODIUM [Concomitant]
     Active Substance: PANTOPRAZOLE SODIUM
  11. LORATADINE [Concomitant]
     Active Substance: LORATADINE
  12. LISINOPRIL [Concomitant]
     Active Substance: LISINOPRIL
  13. FUROSEMIDE [Concomitant]
     Active Substance: FUROSEMIDE
  14. DULOXETINE HYDROCHLORIDE [Concomitant]
     Active Substance: DULOXETINE HYDROCHLORIDE
  15. ASPIRIN [Concomitant]
     Active Substance: ASPIRIN
  16. LYRICA [Concomitant]
     Active Substance: PREGABALIN
  17. LANTUS [Concomitant]
     Active Substance: INSULIN GLARGINE
     Dosage: VIAL
  18. HUMALOG [Concomitant]
     Active Substance: INSULIN LISPRO
     Dosage: CARTRIDGE
  19. ZIRGAN [Concomitant]
     Active Substance: GANCICLOVIR
  20. ERYTHROMYCIN [Concomitant]
     Active Substance: ERYTHROMYCIN
  21. CIPROFLOXACIN HYDROCHLORIDE [Concomitant]
     Active Substance: CIPROFLOXACIN HYDROCHLORIDE
  22. ARTIFICIAL TEARS [Concomitant]
     Dosage: 0.1%-0.3%
  23. ACYCLOVIR [Concomitant]
     Active Substance: ACYCLOVIR

REACTIONS (2)
  - Eye pain [Not Recovered/Not Resolved]
  - Periorbital pain [Unknown]
